FAERS Safety Report 11209222 (Version 1)
Quarter: 2015Q2

REPORT INFORMATION
  Report Type: Spontaneous
  Country: US (occurrence: US)
  Receive Date: 20150622
  Receipt Date: 20150622
  Transmission Date: 20150821
  Serious: Yes (Other)
  Sender: FDA-Public Use
  Company Number: US-BANPHARM-20153980

PATIENT
  Age: 89 Year
  Sex: Male
  Weight: 74.39 kg

DRUGS (1)
  1. ALEVE [Suspect]
     Active Substance: NAPROXEN SODIUM
     Indication: ANALGESIC THERAPY
     Dosage: 1 DF, PRN,
     Route: 048
     Dates: start: 2013

REACTIONS (5)
  - Throat irritation [Recovered/Resolved]
  - Wrong technique in drug usage process [Unknown]
  - Product size issue [Unknown]
  - Hypoaesthesia [Not Recovered/Not Resolved]
  - Choking [Recovered/Resolved]

NARRATIVE: CASE EVENT DATE: 201505
